FAERS Safety Report 19179525 (Version 1)
Quarter: 2021Q2

REPORT INFORMATION
  Report Type: Spontaneous
  Country: AF (occurrence: AF)
  Receive Date: 20210423
  Receipt Date: 20210423
  Transmission Date: 20210717
  Serious: No
  Sender: FDA-Public Use
  Company Number: None

PATIENT
  Age: 66 Year
  Sex: Female

DRUGS (6)
  1. EYLEA [Suspect]
     Active Substance: AFLIBERCEPT
     Indication: DIABETIC RETINAL OEDEMA
     Route: 047
  2. LANTUS [Concomitant]
     Active Substance: INSULIN GLARGINE
  3. RESTASIS [Concomitant]
     Active Substance: CYCLOSPORINE
  4. BABY ASPIRIN [Concomitant]
     Active Substance: ASPIRIN
  5. LEVOTHYROXINE. [Concomitant]
     Active Substance: LEVOTHYROXINE
  6. NOVOLOG [Concomitant]
     Active Substance: INSULIN ASPART

REACTIONS (3)
  - Visual impairment [None]
  - Retinal haemorrhage [None]
  - Vision blurred [None]

NARRATIVE: CASE EVENT DATE: 20210401
